FAERS Safety Report 8090664-6 (Version None)
Quarter: 2012Q1

REPORT INFORMATION
  Report Type: 
  Country: None (occurrence: None)
  Receive Date: 20120129
  Receipt Date: 20111207
  Transmission Date: 20120608
  Serious: Yes (Hospitalization, Other)
  Sender: FDA-Public Use
  Company Number: US-ABBOTT-11P-163-0881660-00

PATIENT
  Sex: Male
  Weight: 110.32 kg

DRUGS (9)
  1. HUMIRA [Suspect]
     Indication: ANKYLOSING SPONDYLITIS
     Dates: start: 20060101, end: 20111011
  2. ATENOLOL [Concomitant]
     Indication: HYPERTENSION
  3. PANTOPRAZOLE [Concomitant]
     Indication: GASTROOESOPHAGEAL REFLUX DISEASE
  4. HUMIRA [Suspect]
     Indication: CROHN'S DISEASE
  5. VICODIN [Concomitant]
     Indication: PAIN
  6. FLUOXETINE [Concomitant]
     Indication: DEPRESSION
  7. ODANSETRON [Concomitant]
     Indication: NAUSEA
     Dates: start: 20111205
  8. LEVETIRACETAM [Concomitant]
     Indication: CONVULSION PROPHYLAXIS
  9. METAXALONE [Concomitant]
     Indication: PAIN

REACTIONS (2)
  - FATIGUE [None]
  - GLIOBLASTOMA [None]
